FAERS Safety Report 7868106-2 (Version None)
Quarter: 2011Q4

REPORT INFORMATION
  Report Type: 
  Country: None (occurrence: None)
  Receive Date: 20111028
  Receipt Date: 20111017
  Transmission Date: 20120403
  Serious: Yes (Other)
  Sender: FDA-Public Use
  Company Number: PHHY2011US92641

PATIENT

DRUGS (6)
  1. VINCRISTINE [Concomitant]
  2. DEXAMETHASONE [Concomitant]
  3. CHEMOTHERAPEUTICS [Concomitant]
     Dates: start: 19970801
  4. DOXORUBICIN HCL [Concomitant]
  5. CLARITHROMYCIN [Concomitant]
     Route: 048
  6. PAMIDRONATE DISODIUM [Suspect]
     Indication: MULTIPLE MYELOMA
     Dosage: 90 MG, MONTHLY
     Route: 042

REACTIONS (4)
  - TENDERNESS [None]
  - PAIN IN EXTREMITY [None]
  - INFLAMMATION [None]
  - FOOT FRACTURE [None]
